FAERS Safety Report 9516061 (Version 2)
Quarter: 2013Q3

REPORT INFORMATION
  Report Type: Report from Study
  Country: US (occurrence: US)
  Receive Date: 20130911
  Receipt Date: 20130917
  Transmission Date: 20140515
  Serious: Yes (Hospitalization)
  Sender: FDA-Public Use
  Company Number: US-PFIZER INC-2013257336

PATIENT
  Age: 65 Year
  Sex: Male
  Weight: 128.4 kg

DRUGS (8)
  1. BLINDED CELECOXIB [Suspect]
     Indication: NON-SMALL CELL LUNG CANCER
     Dosage: BLINDED THERAPY,  CYCLES 1-6: BID DAYS 1 TO 21
     Route: 048
     Dates: start: 20120525, end: 20120526
  2. BLINDED PLACEBO [Suspect]
     Indication: NON-SMALL CELL LUNG CANCER
     Dosage: BLINDED THERAPY,  CYCLES 1-6: BID DAYS 1 TO 21
     Route: 048
     Dates: start: 20120525, end: 20120526
  3. DEXAMETHASONE SODIUM PHOSPHATE [Suspect]
     Indication: CHEMOTHERAPY
     Dosage: UNK
  4. METOPROLOL TARTRATE [Suspect]
     Indication: ATRIAL FIBRILLATION
     Dosage: UNK
  5. VERAPAMIL HCL [Suspect]
     Indication: ATRIAL FIBRILLATION
     Dosage: UNK
  6. DIGOXIN [Suspect]
     Indication: ATRIAL FIBRILLATION
     Dosage: UNK
  7. CARBOPLATIN [Concomitant]
     Indication: NON-SMALL CELL LUNG CANCER
     Dosage: AUC=6.0 DAY 1, CYCLES 1-6
     Route: 042
     Dates: start: 20120525
  8. PEMETREXED [Concomitant]
     Indication: NON-SMALL CELL LUNG CANCER
     Dosage: 500 MG/M2, DAY 1 CYCLE 1-6
     Route: 042
     Dates: start: 20120525

REACTIONS (4)
  - Sinus bradycardia [Recovered/Resolved]
  - Hyperglycaemia [Recovered/Resolved]
  - Acidosis [Recovered/Resolved]
  - Renal failure acute [Recovered/Resolved]
